FAERS Safety Report 6553327-1 (Version None)
Quarter: 2010Q1

REPORT INFORMATION
  Report Type: 
  Country: None (occurrence: None)
  Receive Date: 20100127
  Receipt Date: 20090625
  Transmission Date: 20100710
  Serious: No
  Sender: FDA-Public Use
  Company Number: A0795298A

PATIENT
  Sex: Female

DRUGS (1)
  1. IMITREX [Suspect]
     Indication: DRUG USE FOR UNKNOWN INDICATION
     Route: 065

REACTIONS (2)
  - FATIGUE [None]
  - SOMNOLENCE [None]
